FAERS Safety Report 9208273 (Version 1)
Quarter: 2013Q2

REPORT INFORMATION
  Report Type: Spontaneous
  Country: US (occurrence: US)
  Receive Date: 20130403
  Receipt Date: 20130403
  Transmission Date: 20140414
  Serious: Yes (Life-Threatening)
  Sender: FDA-Public Use
  Company Number: US-PFIZER INC-2013105340

PATIENT
  Sex: Male
  Weight: 74.83 kg

DRUGS (1)
  1. GEODON [Suspect]
     Dosage: 20 MG, UNK

REACTIONS (3)
  - Megacolon [Unknown]
  - Weight decreased [Unknown]
  - Constipation [Unknown]
